FAERS Safety Report 7377003-0 (Version None)
Quarter: 2011Q1

REPORT INFORMATION
  Report Type: 
  Country: None (occurrence: None)
  Receive Date: 20110328
  Receipt Date: 20110318
  Transmission Date: 20110831
  Serious: No
  Sender: FDA-Public Use
  Company Number: US-BIOGENIDEC-2010BI015389

PATIENT
  Age: 60 Year
  Sex: Female

DRUGS (1)
  1. TYSABRI [Suspect]
     Indication: MULTIPLE SCLEROSIS
     Route: 042
     Dates: start: 20091208

REACTIONS (7)
  - FALL [None]
  - DYSSTASIA [None]
  - DRUG INEFFECTIVE [None]
  - BALANCE DISORDER [None]
  - HYPOAESTHESIA [None]
  - MEMORY IMPAIRMENT [None]
  - GAIT DISTURBANCE [None]
